FAERS Safety Report 6142835-3 (Version None)
Quarter: 2009Q2

REPORT INFORMATION
  Report Type: 
  Country: None (occurrence: None)
  Receive Date: 20090403
  Receipt Date: 20090324
  Transmission Date: 20091009
  Serious: Yes (Other)
  Sender: FDA-Public Use
  Company Number: US-AMGEN-QUU333340

PATIENT
  Sex: Female
  Weight: 92.2 kg

DRUGS (3)
  1. ENBREL [Suspect]
     Indication: PSORIATIC ARTHROPATHY
     Route: 058
     Dates: start: 20060921
  2. ENBREL [Suspect]
     Indication: PSORIASIS
  3. VITAMIN TAB [Concomitant]
     Route: 048
     Dates: start: 20061101

REACTIONS (8)
  - ANTEPARTUM HAEMORRHAGE [None]
  - DRUG EXPOSURE DURING PREGNANCY [None]
  - DRUG HYPERSENSITIVITY [None]
  - PREGNANCY [None]
  - PREMATURE LABOUR [None]
  - STRESS [None]
  - THROAT TIGHTNESS [None]
  - URINARY TRACT INFECTION [None]
